FAERS Safety Report 6042708-0 (Version None)
Quarter: 2009Q1

REPORT INFORMATION
  Report Type: 
  Country: None (occurrence: None)
  Receive Date: 20090119
  Receipt Date: 20090108
  Transmission Date: 20090719
  Serious: Yes (Life-Threatening, Hospitalization, Other)
  Sender: FDA-Public Use
  Company Number: US-TEVA-183504USA

PATIENT
  Sex: Male

DRUGS (1)
  1. TETRACYCLINE HCL [Suspect]
     Indication: ACNE
     Route: 048
     Dates: start: 20081119, end: 20081206

REACTIONS (9)
  - BLISTER [None]
  - DIZZINESS [None]
  - OCULAR HYPERAEMIA [None]
  - PYREXIA [None]
  - RASH [None]
  - RASH MACULAR [None]
  - SKIN HAEMORRHAGE [None]
  - SKIN SWELLING [None]
  - STEVENS-JOHNSON SYNDROME [None]
